FAERS Safety Report 6679641-7 (Version None)
Quarter: 2010Q2

REPORT INFORMATION
  Report Type: 
  Country: None (occurrence: None)
  Receive Date: 20100413
  Receipt Date: 20100407
  Transmission Date: 20101027
  Serious: Yes (Hospitalization)
  Sender: FDA-Public Use
  Company Number: A0844959A

PATIENT
  Age: 57 Year
  Sex: Female

DRUGS (3)
  1. ADVAIR DISKUS 100/50 [Suspect]
     Indication: ASTHMA
     Dosage: 1PUFF TWICE PER DAY
     Route: 055
     Dates: start: 20080101, end: 20080102
  2. CALCIUM [Concomitant]
  3. VICODIN [Concomitant]

REACTIONS (11)
  - ABASIA [None]
  - BLINDNESS [None]
  - CONVULSION [None]
  - DIZZINESS [None]
  - DYSPNOEA [None]
  - FALL [None]
  - GASTRIC DISORDER [None]
  - HYPERSENSITIVITY [None]
  - MEDICAL DIET [None]
  - THROAT TIGHTNESS [None]
  - VISION BLURRED [None]
